FAERS Safety Report 18612545 (Version 1)
Quarter: 2020Q4

REPORT INFORMATION
  Report Type: Spontaneous
  Country: CO (occurrence: CO)
  Receive Date: 20201214
  Receipt Date: 20201214
  Transmission Date: 20210114
  Serious: Yes (Other)
  Sender: FDA-Public Use
  Company Number: CO-SA-2020SA351635

PATIENT

DRUGS (2)
  1. LANTUS [Suspect]
     Active Substance: INSULIN GLARGINE
     Indication: DIABETES MELLITUS
     Dosage: 33 IU, QD
     Route: 058
     Dates: start: 2017
  2. APIDRA [Suspect]
     Active Substance: INSULIN GLULISINE
     Indication: DIABETES MELLITUS
     Dosage: 12 IU, QD
     Route: 058

REACTIONS (3)
  - Product storage error [Unknown]
  - Blood glucose increased [Recovered/Resolved]
  - Diabetic metabolic decompensation [Recovered/Resolved]
